FAERS Safety Report 17865883 (Version 2)
Quarter: 2020Q2

REPORT INFORMATION
  Report Type: Spontaneous
  Country: PA (occurrence: PA)
  Receive Date: 20200605
  Receipt Date: 20200630
  Transmission Date: 20200714
  Serious: Yes (Other)
  Sender: FDA-Public Use
  Company Number: PA-ROCHE-2613865

PATIENT
  Age: 51 Year
  Sex: Female

DRUGS (12)
  1. GABAPENTIN. [Suspect]
     Active Substance: GABAPENTIN
     Indication: INTERVERTEBRAL DISC PROTRUSION
     Route: 065
  2. BRIMONIDINE TARTRATE. [Concomitant]
     Active Substance: BRIMONIDINE TARTRATE
     Indication: ANGLE CLOSURE GLAUCOMA
     Dosage: UNK
     Route: 065
  3. SPIRIVA [Concomitant]
     Active Substance: TIOTROPIUM BROMIDE MONOHYDRATE
  4. PREDNISOLONE. [Concomitant]
     Active Substance: PREDNISOLONE
     Indication: ARTHRITIS
     Route: 065
  5. DORZOLAMIDE [Concomitant]
     Active Substance: DORZOLAMIDE
     Indication: ANGLE CLOSURE GLAUCOMA
  6. BECLOMETHASONE [BECLOMETASONE] [Concomitant]
     Active Substance: BECLOMETHASONE
     Route: 065
  7. SULFASALAZINE DELAYED-RELEASE [Concomitant]
     Active Substance: SULFASALAZINE
     Indication: PRODUCT USED FOR UNKNOWN INDICATION
     Route: 065
  8. XOLAIR [Suspect]
     Active Substance: OMALIZUMAB
     Indication: ASTHMA
     Route: 065
  9. XOLAIR [Suspect]
     Active Substance: OMALIZUMAB
     Route: 065
     Dates: start: 201904
  10. XOLAIR [Suspect]
     Active Substance: OMALIZUMAB
     Route: 058
     Dates: start: 20180921, end: 20200305
  11. IPRATROPIUM BROMIDE. [Concomitant]
     Active Substance: IPRATROPIUM BROMIDE
     Route: 045
  12. VERAPAMIL [Concomitant]
     Active Substance: VERAPAMIL HYDROCHLORIDE
     Indication: HYPERTENSION
     Route: 065

REACTIONS (22)
  - Ear pruritus [Unknown]
  - Erythema [Unknown]
  - Dysphonia [Not Recovered/Not Resolved]
  - Headache [Unknown]
  - Eye pain [Unknown]
  - Pruritus [Unknown]
  - Vocal cord inflammation [Not Recovered/Not Resolved]
  - Rash [Unknown]
  - Spinal disorder [Unknown]
  - Product use in unapproved indication [Unknown]
  - Cough [Not Recovered/Not Resolved]
  - Gait disturbance [Unknown]
  - Visual impairment [Unknown]
  - Nasal congestion [Unknown]
  - Tooth abscess [Unknown]
  - Hypersensitivity [Not Recovered/Not Resolved]
  - Dysstasia [Unknown]
  - Nodule [Not Recovered/Not Resolved]
  - Back pain [Unknown]
  - Glaucoma [Not Recovered/Not Resolved]
  - Feeling hot [Unknown]
  - Swelling face [Unknown]

NARRATIVE: CASE EVENT DATE: 202001
